FAERS Safety Report 6880454-1 (Version None)
Quarter: 2010Q3

REPORT INFORMATION
  Report Type: 
  Country: None (occurrence: None)
  Receive Date: 20100727
  Receipt Date: 20100708
  Transmission Date: 20110219
  Serious: Yes (Death, Hospitalization)
  Sender: FDA-Public Use
  Company Number: A0866854A

PATIENT
  Age: 51 Year
  Sex: Female
  Weight: 84.1 kg

DRUGS (1)
  1. AVANDIA [Suspect]
     Indication: DIABETES MELLITUS
     Dosage: 2MG PER DAY
     Route: 048
     Dates: start: 20050810

REACTIONS (7)
  - ACUTE MYOCARDIAL INFARCTION [None]
  - BLINDNESS [None]
  - CARDIAC FAILURE CONGESTIVE [None]
  - DEMENTIA [None]
  - DEPRESSION [None]
  - HYPERSENSITIVITY [None]
  - ISCHAEMIC CARDIOMYOPATHY [None]
